FAERS Safety Report 16384460 (Version 1)
Quarter: 2019Q3

REPORT INFORMATION
  Report Type: Spontaneous
  Country: US (occurrence: US)
  Receive Date: 20190531
  Receipt Date: 20190531
  Transmission Date: 20191004
  Serious: Yes (Other)
  Sender: FDA-Public Use
  Company Number: None

PATIENT
  Age: 30 Year
  Sex: Female
  Weight: 62.1 kg

DRUGS (2)
  1. BUPRENORPHINE-NALOXONE (SUBOXONE) 8-2 MG SL TABLET [Concomitant]
     Dates: start: 20180524, end: 20190425
  2. SUBOXONE [Suspect]
     Active Substance: BUPRENORPHINE HYDROCHLORIDE\NALOXONE HYDROCHLORIDE
     Indication: DRUG DEPENDENCE
     Route: 060
     Dates: start: 20180424, end: 20190425

REACTIONS (4)
  - Delivery [None]
  - Peripheral swelling [None]
  - Maternal exposure during pregnancy [None]
  - Rash [None]

NARRATIVE: CASE EVENT DATE: 20190425
